FAERS Safety Report 14629842 (Version 1)
Quarter: 2018Q1

REPORT INFORMATION
  Report Type: Spontaneous
  Country: US (occurrence: US)
  Receive Date: 20180313
  Receipt Date: 20180313
  Transmission Date: 20180509
  Serious: Yes (Hospitalization, Other)
  Sender: FDA-Public Use
  Company Number: US-FERRINGPH-2018FE01054

PATIENT

DRUGS (6)
  1. CLIMARA [Suspect]
     Active Substance: ESTRADIOL
     Indication: IN VITRO FERTILISATION
     Dosage: 1 DF, EVERY OTHER DAY
  2. NOVAREL [Suspect]
     Active Substance: CHORIOGONADOTROPIN ALFA
     Indication: OVULATION INDUCTION
     Dosage: 5000 IU, ONCE/SINGLE
     Route: 030
  3. GANIRELIX [Suspect]
     Active Substance: GANIRELIX
     Indication: IN VITRO FERTILISATION
     Dosage: UNK
  4. NOVAREL [Suspect]
     Active Substance: CHORIOGONADOTROPIN ALFA
     Dosage: 5000 IU, ONCE/SINGLE
     Route: 030
  5. FOLLISTIM [Suspect]
     Active Substance: FOLLITROPIN
     Indication: OVULATION INDUCTION
     Dosage: 450 IU, DAILY
  6. MENOPUR [Suspect]
     Active Substance: FOLLITROPIN\LUTEINIZING HORMONE
     Indication: OVULATION INDUCTION
     Dosage: 75 IU, DAILY
     Route: 065

REACTIONS (2)
  - Multiple pregnancy [Recovered/Resolved]
  - Drug ineffective [Unknown]
